FAERS Safety Report 5914509-2 (Version None)
Quarter: 2008Q4

REPORT INFORMATION
  Report Type: 
  Country: None (occurrence: None)
  Receive Date: 20081008
  Receipt Date: 20080912
  Transmission Date: 20090506
  Serious: Yes (Hospitalization)
  Sender: FDA-Public Use
  Company Number: 013967

PATIENT
  Age: 40 Year
  Sex: Female
  Weight: 66 kg

DRUGS (9)
  1. PRIALT [Suspect]
     Indication: PAIN
     Dosage: 0.425 UG, ONCE/HOUR, INTRATHECAL
     Route: 037
     Dates: start: 20080616
  2. CYCLIMORPH(CYCLIZINE TARTRATE, MORPHINE TARTRATE) [Suspect]
     Indication: PAIN
     Dosage: SINGLE, INTRAMUSCULAR
     Route: 030
     Dates: start: 20080907, end: 20080907
  3. ETORICOXIB (ETORICOXIB) [Concomitant]
  4. AMITRIPTYLINE HYDROCHLORIDE [Concomitant]
  5. BACLOFEN [Concomitant]
  6. LANSOPRAZOLE (LANSOPRAZOLE) [Concomitant]
  7. CYCLIZINE [Concomitant]
  8. FUSIDIC ACID [Concomitant]
  9. MINOCYCLINE HCL [Concomitant]

REACTIONS (3)
  - CONVULSION [None]
  - MALAISE [None]
  - PAIN [None]
